FAERS Safety Report 24778011 (Version 1)
Quarter: 2024Q4

REPORT INFORMATION
  Report Type: Spontaneous
  Country: HU (occurrence: HU)
  Receive Date: 20241226
  Receipt Date: 20241226
  Transmission Date: 20250115
  Serious: Yes (Other)
  Sender: TEVA
  Company Number: HU-002147023-NVSC2024HU224953

PATIENT
  Age: 58 Year
  Sex: Female

DRUGS (7)
  1. DICLOFENAC [Suspect]
     Active Substance: DICLOFENAC
     Indication: Sacral pain
     Dosage: UNK
     Route: 065
     Dates: start: 2001
  2. MELOXICAM [Concomitant]
     Active Substance: MELOXICAM
     Indication: Sacral pain
     Dosage: UNK
     Route: 065
     Dates: start: 2001
  3. COSENTYX [Suspect]
     Active Substance: SECUKINUMAB
     Indication: Product used for unknown indication
     Dosage: 300 MG, QMO
     Route: 065
     Dates: start: 202102, end: 202201
  4. COSENTYX [Suspect]
     Active Substance: SECUKINUMAB
     Indication: Product used for unknown indication
     Dosage: UNK
     Route: 065
     Dates: start: 20230228
  5. CIMZIA [Concomitant]
     Active Substance: CERTOLIZUMAB PEGOL
     Indication: Product used for unknown indication
     Dosage: 200 MG, Q2W
     Route: 058
     Dates: start: 20010321, end: 202101
  6. COSENTYX [Concomitant]
     Active Substance: SECUKINUMAB
     Indication: Product used for unknown indication
     Dosage: UNK
     Route: 065
  7. NAPROXEN [Concomitant]
     Active Substance: NAPROXEN
     Indication: Product used for unknown indication
     Dosage: UNK
     Route: 065
     Dates: start: 2001

REACTIONS (16)
  - Thyroid cancer [Unknown]
  - Blood triglycerides [Unknown]
  - Hypertension [Unknown]
  - Low density lipoprotein [Unknown]
  - Arteriosclerosis coronary artery [Unknown]
  - Low density lipoprotein [Unknown]
  - Autoimmune thyroiditis [Unknown]
  - Ankylosing spondylitis [Unknown]
  - C-reactive protein [Unknown]
  - Sacroiliitis [Unknown]
  - Blood triglycerides [Unknown]
  - Leiomyoma [Unknown]
  - BASDAI score [Unknown]
  - Total cholesterol/HDL ratio [Unknown]
  - High density lipoprotein [Unknown]
  - Blood triglycerides [Unknown]

NARRATIVE: CASE EVENT DATE: 20040101
